FAERS Safety Report 20027188 (Version 1)
Quarter: 2021Q4

REPORT INFORMATION
  Report Type: Spontaneous
  Country: IR (occurrence: IR)
  Receive Date: 20211103
  Receipt Date: 20211103
  Transmission Date: 20220303
  Serious: Yes (Other)
  Sender: FDA-Public Use
  Company Number: IR-SUN PHARMACEUTICAL INDUSTRIES LTD-2021R1-316042

PATIENT
  Age: 44 Year
  Sex: Male

DRUGS (5)
  1. LOPINAVIR\RITONAVIR [Interacting]
     Active Substance: LOPINAVIR\RITONAVIR
     Indication: COVID-19
     Dosage: 400MG/100MG
     Route: 065
  2. HYDROXYCHLOROQUINE [Interacting]
     Active Substance: HYDROXYCHLOROQUINE
     Indication: COVID-19
     Dosage: 400 MILLIGRAM, STAT
     Route: 065
  3. TACROLIMUS [Interacting]
     Active Substance: TACROLIMUS
     Indication: COVID-19
     Dosage: 1 MILLIGRAM, BID
     Route: 065
  4. OSELTAMIVIR [Interacting]
     Active Substance: OSELTAMIVIR
     Indication: COVID-19
     Dosage: 75 MILLIGRAM, BID
     Route: 065
  5. HYDROCORTISONE [Interacting]
     Active Substance: HYDROCORTISONE
     Indication: COVID-19
     Dosage: 50 MILLIGRAM, TID
     Route: 065

REACTIONS (3)
  - Condition aggravated [Unknown]
  - Drug level increased [Recovering/Resolving]
  - Drug interaction [Unknown]
